FAERS Safety Report 4943260-0 (Version None)
Quarter: 2006Q1

REPORT INFORMATION
  Report Type: 
  Country: None (occurrence: None)
  Receive Date: 20060314
  Receipt Date: 20060223
  Transmission Date: 20060701
  Serious: Yes (Life-Threatening)
  Sender: FDA-Public Use
  Company Number: JP-ROCHE-438263

PATIENT
  Age: 50 Year
  Sex: Female
  Weight: 54 kg

DRUGS (5)
  1. TAMIFLU [Suspect]
     Indication: INFLUENZA
     Route: 048
     Dates: start: 20060204, end: 20060205
  2. PONTAL [Suspect]
     Indication: INFLUENZA
     Route: 048
     Dates: start: 20060204, end: 20060205
  3. PA [Concomitant]
     Route: 048
     Dates: start: 20060204, end: 20060205
  4. ASVERIN [Concomitant]
     Route: 048
     Dates: start: 20060204, end: 20060205
  5. PRIMPERAN TAB [Concomitant]
     Route: 048
     Dates: start: 20060204, end: 20060205

REACTIONS (2)
  - HYPERSENSITIVITY [None]
  - LARYNGEAL OEDEMA [None]
